FAERS Safety Report 8123541-2 (Version None)
Quarter: 2012Q1

REPORT INFORMATION
  Report Type: 
  Country: None (occurrence: None)
  Receive Date: 20120208
  Receipt Date: 20120201
  Transmission Date: 20120608
  Serious: Yes (Other)
  Sender: FDA-Public Use
  Company Number: PHHY2012DE009158

PATIENT
  Age: 77 Year
  Sex: Female

DRUGS (3)
  1. FEMARA [Suspect]
     Dosage: 2.5 MG,  / DAY
     Route: 048
     Dates: start: 20100801, end: 20120101
  2. ATORVASTATIN CALCIUM [Concomitant]
  3. ATACAND [Concomitant]

REACTIONS (1)
  - SPEECH DISORDER [None]
